FAERS Safety Report 16568516 (Version 1)
Quarter: 2019Q3

REPORT INFORMATION
  Report Type: Report from Study
  Country: BR (occurrence: BR)
  Receive Date: 20190712
  Receipt Date: 20190712
  Transmission Date: 20191004
  Serious: Yes (Hospitalization)
  Sender: FDA-Public Use
  Company Number: PHHY2019BR157031

PATIENT
  Sex: Female

DRUGS (4)
  1. CARVEDILOL. [Suspect]
     Active Substance: CARVEDILOL
     Indication: PRODUCT USED FOR UNKNOWN INDICATION
     Dosage: UNK
     Route: 065
  2. ENTRESTO [Suspect]
     Active Substance: SACUBITRIL\VALSARTAN
     Dosage: 100 MG (SACUBITRIL 49MG AND VALSARTAN 51MG), UNK
     Route: 065
     Dates: start: 20190628
  3. ENTRESTO [Suspect]
     Active Substance: SACUBITRIL\VALSARTAN
     Indication: PRODUCT USED FOR UNKNOWN INDICATION
     Dosage: 50 MG SACUBITRIL 24MG AND VALSARTAN 26MG), UNK
     Route: 065
     Dates: start: 201802, end: 201807
  4. ENTRESTO [Suspect]
     Active Substance: SACUBITRIL\VALSARTAN
     Dosage: 50 MG SACUBITRIL 24MG AND VALSARTAN 26MG), UNK
     Route: 065
     Dates: start: 201810

REACTIONS (4)
  - Fatigue [Unknown]
  - Dizziness [Unknown]
  - Cardiac failure [Unknown]
  - Malaise [Not Recovered/Not Resolved]
